FAERS Safety Report 21699890 (Version 1)
Quarter: 2022Q4

REPORT INFORMATION
  Report Type: Spontaneous
  Country: CN (occurrence: CN)
  Receive Date: 20221208
  Receipt Date: 20221208
  Transmission Date: 20230113
  Serious: Yes (Other)
  Sender: FDA-Public Use
  Company Number: CN-009507513-2212CHN002580

PATIENT
  Age: 71 Year
  Sex: Male
  Weight: 50 kg

DRUGS (1)
  1. CILASTATIN SODIUM\IMIPENEM [Suspect]
     Active Substance: CILASTATIN SODIUM\IMIPENEM
     Indication: Infection
     Dosage: 0.5 G, Q8H, IV DRIP
     Route: 041
     Dates: start: 20221116, end: 20221120

REACTIONS (4)
  - Delirium [Recovering/Resolving]
  - Flushing [Recovering/Resolving]
  - Mental disorder [Unknown]
  - Product use issue [Unknown]

NARRATIVE: CASE EVENT DATE: 20221116
